FAERS Safety Report 9886684 (Version 1)
Quarter: 2014Q1

REPORT INFORMATION
  Report Type: Spontaneous
  Country: FR (occurrence: FR)
  Receive Date: 20140210
  Receipt Date: 20140210
  Transmission Date: 20141002
  Serious: Yes (Life-Threatening, Hospitalization)
  Sender: FDA-Public Use
  Company Number: FR-BIOMARINAP-FR-2014-102490

PATIENT
  Age: 3 Year
  Sex: Male

DRUGS (6)
  1. ALDURAZYME [Suspect]
     Indication: MUCOPOLYSACCHARIDOSIS I
     Dosage: 285.7143 IU, QW
     Route: 042
     Dates: start: 201011
  2. POLARAMINE [Concomitant]
     Indication: PREMEDICATION
  3. GEMCITABINE [Concomitant]
     Indication: PRODUCT USED FOR UNKNOWN INDICATION
  4. RIFAMPICINE [Concomitant]
     Indication: PRODUCT USED FOR UNKNOWN INDICATION
  5. BACTRIM [Concomitant]
     Indication: PRODUCT USED FOR UNKNOWN INDICATION
  6. BIONOLYTE GLUCOSE [Concomitant]
     Indication: PRODUCT USED FOR UNKNOWN INDICATION

REACTIONS (3)
  - Hypertension [Recovered/Resolved]
  - Pyrexia [Recovered/Resolved]
  - Hypotension [Recovered/Resolved]
